FAERS Safety Report 18664624 (Version 3)
Quarter: 2021Q1

REPORT INFORMATION
  Report Type: Spontaneous
  Country: GB (occurrence: GB)
  Receive Date: 20201225
  Receipt Date: 20210225
  Transmission Date: 20210419
  Serious: Yes (Other)
  Sender: FDA-Public Use
  Company Number: GB-BIOVITRUM-2020GB7895

PATIENT
  Age: 55 Year
  Sex: Male

DRUGS (17)
  1. ORFADIN [Suspect]
     Active Substance: NITISINONE
     Indication: ALKAPTONURIA
     Dates: start: 2016
  2. SUSTAC [Concomitant]
     Active Substance: NITROGLYCERIN
     Dates: start: 2016
  3. LOWPLAT [Concomitant]
     Dates: start: 2016
  4. CONCOR [Concomitant]
     Active Substance: BISOPROLOL FUMARATE
     Dates: start: 2018
  5. SUSTAC [Concomitant]
     Active Substance: NITROGLYCERIN
     Dates: start: 2018
  6. NORVASC [Concomitant]
     Active Substance: AMLODIPINE BESYLATE
     Dates: start: 2016
  7. NORVASC [Concomitant]
     Active Substance: AMLODIPINE BESYLATE
     Dates: start: 2018
  8. LIPIREX [Concomitant]
     Dates: start: 2018
  9. INSULIN [Concomitant]
     Active Substance: INSULIN NOS
  10. METHYCOBAL [Concomitant]
     Active Substance: METHYLCOBALAMIN
  11. CONCOR [Concomitant]
     Active Substance: BISOPROLOL FUMARATE
     Dates: start: 2016
  12. VILDAGLIPTIN [Concomitant]
     Active Substance: VILDAGLIPTIN
  13. LIPIREX [Concomitant]
     Dates: start: 2016
  14. LOWPLAT [Concomitant]
     Dates: start: 2018
  15. REGAIN [Concomitant]
     Active Substance: MINOXIDIL
  16. GLUCOPHAGE [Concomitant]
     Active Substance: METFORMIN HYDROCHLORIDE
  17. GALVUSMET [Concomitant]
     Active Substance: METFORMIN HYDROCHLORIDE\VILDAGLIPTIN

REACTIONS (2)
  - Amino acid level increased [Not Recovered/Not Resolved]
  - Lenticular opacities [Not Recovered/Not Resolved]

NARRATIVE: CASE EVENT DATE: 2016
